FAERS Safety Report 7610275-3 (Version None)
Quarter: 2011Q3

REPORT INFORMATION
  Report Type: 
  Country: None (occurrence: None)
  Receive Date: 20110715
  Receipt Date: 20110704
  Transmission Date: 20111222
  Serious: Yes (Hospitalization, Other)
  Sender: FDA-Public Use
  Company Number: JP-SHIRE-ALL1-2011-01691

PATIENT
  Age: 73 Year
  Sex: Male

DRUGS (9)
  1. LASIX [Concomitant]
     Indication: CARDIAC FAILURE
     Dosage: 20 MG, UNKNOWN
     Route: 048
  2. VASOMET [Concomitant]
     Indication: HYPERTENSION
     Dosage: 0.5 MG, UNKNOWN
     Route: 048
  3. FOSRENOL [Suspect]
     Indication: HYPERPHOSPHATAEMIA
     Dosage: 750 MG, 1X/DAY:QD
     Route: 048
     Dates: start: 20100203
  4. IRSOGLADINE MALEATE [Concomitant]
     Indication: GASTRITIS
     Dosage: 100 MG, UNKNOWN
     Route: 048
  5. DIART [Concomitant]
     Indication: CARDIAC FAILURE
     Dosage: 60 MG, UNKNOWN
     Route: 048
  6. DAIOKANZOTO [Concomitant]
     Indication: CONSTIPATION
     Dosage: 15 MG, UNKNOWN
     Route: 048
  7. EPOGIN [Concomitant]
     Indication: NEPHROGENIC ANAEMIA
     Dosage: 4500 IU, 1X/WEEK
     Route: 042
  8. AMOBAN [Concomitant]
     Indication: INSOMNIA
     Dosage: 15 MG, UNKNOWN
     Route: 048
  9. POTASSIUM GLUCONATE TAB [Concomitant]
     Indication: HYPOKALAEMIA
     Dosage: 2 MG, UNKNOWN
     Route: 048
     Dates: start: 20110529

REACTIONS (2)
  - ASPIRATION [None]
  - HYPOXIA [None]
